FAERS Safety Report 8508025-1 (Version None)
Quarter: 2012Q3

REPORT INFORMATION
  Report Type: 
  Country: None (occurrence: None)
  Receive Date: 20120713
  Receipt Date: 20120707
  Transmission Date: 20120928
  Serious: Yes (Death)
  Sender: FDA-Public Use
  Company Number: PHEH2012US013686

PATIENT
  Sex: Male

DRUGS (2)
  1. TOBI [Suspect]
     Indication: CYSTIC FIBROSIS
     Dosage: 1 AMP (300MG/5ML), BID
     Dates: start: 20120209
  2. PULMOZYME [Concomitant]
     Dosage: 2.5 MG, UNK

REACTIONS (2)
  - DISEASE PROGRESSION [None]
  - CYSTIC FIBROSIS [None]
